FAERS Safety Report 5799215-X (Version None)
Quarter: 2008Q3

REPORT INFORMATION
  Report Type: 
  Country: None (occurrence: None)
  Receive Date: 20080702
  Receipt Date: 20080623
  Transmission Date: 20090109
  Serious: Yes (Hospitalization, Other)
  Sender: FDA-Public Use
  Company Number: US-PFIZER INC-2008040853

PATIENT
  Sex: Female
  Weight: 117.9 kg

DRUGS (16)
  1. CHANTIX [Suspect]
     Indication: SMOKING CESSATION THERAPY
  2. DARVOCET [Concomitant]
  3. LYRICA [Concomitant]
  4. EFFEXOR XR [Concomitant]
  5. SEROQUEL [Concomitant]
  6. NABUMETONE [Concomitant]
  7. TOPAMAX [Concomitant]
  8. KLONOPIN [Concomitant]
  9. ABILIFY [Concomitant]
  10. ANALGESICS [Concomitant]
  11. HYDROCHLOROTHIAZIDE [Concomitant]
  12. PRILOSEC [Concomitant]
  13. VERAPAMIL [Concomitant]
  14. GABAPENTIN [Concomitant]
  15. TRAMADOL HCL [Concomitant]
  16. ADDERALL 10 [Concomitant]

REACTIONS (4)
  - AGITATION [None]
  - ANXIETY [None]
  - CONDITION AGGRAVATED [None]
  - SUICIDAL IDEATION [None]
